FAERS Safety Report 11793695 (Version 1)
Quarter: 2015Q4

REPORT INFORMATION
  Report Type: Spontaneous
  Country: US (occurrence: None)
  Receive Date: 20151201
  Receipt Date: 20151201
  Transmission Date: 20160305
  Serious: Yes (Hospitalization)
  Sender: FDA-Public Use
  Company Number: None

PATIENT
  Age: 72 Year
  Sex: Male
  Weight: 62 kg

DRUGS (5)
  1. ASA 81 MG QD X 28 DAYS PO [Suspect]
     Active Substance: ASPIRIN
     Indication: INVESTIGATION
     Dates: start: 20151110
  2. ZOCOR [Suspect]
     Active Substance: SIMVASTATIN
     Indication: INVESTIGATION
     Dates: start: 20151110
  3. RAMUCIRUMAB [Concomitant]
     Active Substance: RAMUCIRUMAB
  4. PACLITAXEL. [Concomitant]
     Active Substance: PACLITAXEL
  5. MAG OX [Concomitant]
     Active Substance: MAGNESIUM OXIDE

REACTIONS (1)
  - Pneumonia [None]

NARRATIVE: CASE EVENT DATE: 20151122
